FAERS Safety Report 19734665 (Version 3)
Quarter: 2023Q1

REPORT INFORMATION
  Report Type: Spontaneous
  Country: FR (occurrence: FR)
  Receive Date: 20210824
  Receipt Date: 20230319
  Transmission Date: 20230418
  Serious: Yes (Hospitalization)
  Sender: FDA-Public Use
  Company Number: FR-AFSSAPS-AN20213236

PATIENT
  Age: 93 Year
  Sex: Male

DRUGS (7)
  1. MIRTAZAPINE [Suspect]
     Active Substance: MIRTAZAPINE
     Indication: Depression
     Dosage: 15 MILLIGRAM, ONCE A DAY
     Route: 048
     Dates: start: 20210715
  2. COMIRNATY [Suspect]
     Active Substance: TOZINAMERAN
     Indication: COVID-19 immunisation
     Dosage: 1 DOSAGE FORM, ONE TOTAL
     Route: 030
     Dates: start: 20210628, end: 20210628
  3. RAMIPRIL [Concomitant]
     Active Substance: RAMIPRIL
     Indication: Product used for unknown indication
     Dosage: 25 MILLIGRAM, ONCE A DAY
     Route: 065
  4. RAMIPRIL [Concomitant]
     Active Substance: RAMIPRIL
     Dosage: 1.25 MILLIGRAM, ONCE A DAY
     Route: 065
  5. BISOPROLOL [Concomitant]
     Active Substance: BISOPROLOL
     Indication: Product used for unknown indication
     Dosage: 1 DOSAGE FORM, ONCE A DAY
     Route: 065
  6. ELIQUIS [Concomitant]
     Active Substance: APIXABAN
     Indication: Product used for unknown indication
     Dosage: 1 DOSAGE FORM, ONCE A DAY
     Route: 065
  7. ELIQUIS [Concomitant]
     Active Substance: APIXABAN
     Dosage: 2 DOSAGE FORM, ONCE A DAY
     Route: 065

REACTIONS (1)
  - Viral infection [Recovered/Resolved]

NARRATIVE: CASE EVENT DATE: 20210719
